FAERS Safety Report 24662989 (Version 2)
Quarter: 2025Q2

REPORT INFORMATION
  Report Type: Report from Study
  Country: CN (occurrence: CN)
  Receive Date: 20241126
  Receipt Date: 20250513
  Transmission Date: 20250717
  Serious: Yes (Other)
  Sender: ROCHE
  Company Number: CN-ROCHE-10000060761

PATIENT
  Age: 70 Year
  Sex: Male
  Weight: 79 kg

DRUGS (33)
  1. POLATUZUMAB VEDOTIN [Suspect]
     Active Substance: POLATUZUMAB VEDOTIN
     Indication: Diffuse large B-cell lymphoma
     Route: 042
     Dates: end: 20240524
  2. POLATUZUMAB VEDOTIN [Suspect]
     Active Substance: POLATUZUMAB VEDOTIN
     Route: 042
     Dates: start: 20240615, end: 20240615
  3. POLATUZUMAB VEDOTIN [Suspect]
     Active Substance: POLATUZUMAB VEDOTIN
     Route: 042
     Dates: start: 20240711, end: 20240711
  4. POLATUZUMAB VEDOTIN [Suspect]
     Active Substance: POLATUZUMAB VEDOTIN
     Route: 042
     Dates: start: 20240825, end: 20240825
  5. RITUXIMAB [Suspect]
     Active Substance: RITUXIMAB
     Indication: Diffuse large B-cell lymphoma
     Dosage: ONCE
     Route: 042
     Dates: start: 20240429, end: 20240429
  6. RITUXIMAB [Suspect]
     Active Substance: RITUXIMAB
     Dosage: ONCE
     Route: 042
     Dates: start: 20240523, end: 20240523
  7. RITUXIMAB [Suspect]
     Active Substance: RITUXIMAB
     Dosage: ONCE
     Route: 042
     Dates: start: 20240614, end: 20240614
  8. RITUXIMAB [Suspect]
     Active Substance: RITUXIMAB
     Dosage: ONCE
     Route: 042
     Dates: start: 20240710, end: 20240710
  9. RITUXIMAB [Suspect]
     Active Substance: RITUXIMAB
     Dosage: ONCE
     Route: 042
     Dates: start: 20240802, end: 20240802
  10. RITUXIMAB [Suspect]
     Active Substance: RITUXIMAB
     Dosage: ONCE
     Route: 042
     Dates: start: 20240803, end: 20240803
  11. RITUXIMAB [Suspect]
     Active Substance: RITUXIMAB
     Dosage: ONCE
     Route: 042
     Dates: start: 20240824, end: 20240824
  12. DOXORUBICIN [Suspect]
     Active Substance: DOXORUBICIN
     Indication: Diffuse large B-cell lymphoma
     Dosage: ONCE
     Route: 042
     Dates: end: 20240803
  13. DOXORUBICIN [Suspect]
     Active Substance: DOXORUBICIN
     Dosage: ONCE
     Route: 042
     Dates: start: 20240825, end: 20240825
  14. DEXAMETHASONE [Suspect]
     Active Substance: DEXAMETHASONE
     Indication: Diffuse large B-cell lymphoma
     Route: 042
     Dates: start: 20240430, end: 20240504
  15. DEXAMETHASONE [Suspect]
     Active Substance: DEXAMETHASONE
     Route: 042
     Dates: start: 20240524, end: 20240528
  16. DEXAMETHASONE [Suspect]
     Active Substance: DEXAMETHASONE
     Route: 042
     Dates: start: 20240615, end: 20240619
  17. DEXAMETHASONE [Suspect]
     Active Substance: DEXAMETHASONE
     Route: 042
     Dates: start: 20240711, end: 20240715
  18. DEXAMETHASONE [Suspect]
     Active Substance: DEXAMETHASONE
     Route: 042
     Dates: start: 20240803, end: 20240807
  19. DEXAMETHASONE [Suspect]
     Active Substance: DEXAMETHASONE
     Route: 042
     Dates: start: 20240825, end: 20240829
  20. VINDESINE [Suspect]
     Active Substance: VINDESINE
     Indication: Diffuse large B-cell lymphoma
     Route: 042
     Dates: start: 20240430, end: 20240430
  21. CYCLOPHOSPHAMIDE [Suspect]
     Active Substance: CYCLOPHOSPHAMIDE
     Indication: Diffuse large B-cell lymphoma
     Route: 042
     Dates: start: 20240430, end: 20240430
  22. CYCLOPHOSPHAMIDE [Suspect]
     Active Substance: CYCLOPHOSPHAMIDE
     Route: 042
     Dates: start: 20240524, end: 20240524
  23. CYCLOPHOSPHAMIDE [Suspect]
     Active Substance: CYCLOPHOSPHAMIDE
     Route: 042
     Dates: start: 20240615, end: 20240615
  24. CYCLOPHOSPHAMIDE [Suspect]
     Active Substance: CYCLOPHOSPHAMIDE
     Route: 042
     Dates: start: 20240711, end: 20240711
  25. CYCLOPHOSPHAMIDE [Suspect]
     Active Substance: CYCLOPHOSPHAMIDE
     Route: 042
     Dates: start: 20240803, end: 20240803
  26. CYCLOPHOSPHAMIDE [Suspect]
     Active Substance: CYCLOPHOSPHAMIDE
     Route: 042
     Dates: start: 20240825, end: 20240825
  27. PREDNISONE [Suspect]
     Active Substance: PREDNISONE
     Indication: Diffuse large B-cell lymphoma
     Route: 065
  28. PIRARUBICIN [Suspect]
     Active Substance: PIRARUBICIN
     Indication: Diffuse large B-cell lymphoma
     Route: 042
     Dates: start: 20240430, end: 20240430
  29. PIRARUBICIN [Suspect]
     Active Substance: PIRARUBICIN
     Route: 042
     Dates: start: 20240524, end: 20240524
  30. PIRARUBICIN [Suspect]
     Active Substance: PIRARUBICIN
     Route: 042
     Dates: start: 20240615, end: 20240615
  31. PIRARUBICIN [Suspect]
     Active Substance: PIRARUBICIN
     Route: 042
     Dates: start: 20240711, end: 20240711
  32. ACETAMINOPHEN [Concomitant]
     Active Substance: ACETAMINOPHEN
     Route: 048
     Dates: start: 20240711, end: 20240711
  33. DIPHENHYDRAMINE HYDROCHLORIDE [Concomitant]
     Active Substance: DIPHENHYDRAMINE HYDROCHLORIDE
     Route: 030
     Dates: start: 20240523, end: 20240524

REACTIONS (1)
  - Myelosuppression [Recovered/Resolved]

NARRATIVE: CASE EVENT DATE: 20240506
